FAERS Safety Report 21470253 (Version 2)
Quarter: 2022Q4

REPORT INFORMATION
  Report Type: Report from Study
  Country: US (occurrence: US)
  Receive Date: 20221018
  Receipt Date: 20221122
  Transmission Date: 20230112
  Serious: Yes (Other)
  Sender: FDA-Public Use
  Company Number: US-BRISTOL-MYERS SQUIBB COMPANY-2022-121268

PATIENT
  Age: 68 Year
  Sex: Female
  Weight: 47.17 kg

DRUGS (6)
  1. REVLIMID [Suspect]
     Active Substance: LENALIDOMIDE
     Indication: Plasma cell myeloma
     Dosage: 10 MG/ 1 CAP, 21 OUT OF 28 DAYS?DAILY ON DAYS 1-21 OUT OF 28 DAYS
     Route: 048
     Dates: start: 20210318
  2. LOW DOSE ASPIRIN EC [Concomitant]
     Indication: Product used for unknown indication
     Route: 065
  3. ESCITALOPRAM OXALATE [Concomitant]
     Active Substance: ESCITALOPRAM OXALATE
     Indication: Product used for unknown indication
     Route: 065
  4. COLACE [Concomitant]
     Active Substance: DOCUSATE SODIUM
     Indication: Product used for unknown indication
     Route: 065
  5. HYDROCHLOROTHIAZIDE [Concomitant]
     Active Substance: HYDROCHLOROTHIAZIDE
     Indication: Product used for unknown indication
     Route: 065
  6. ASPIRIN [Concomitant]
     Active Substance: ASPIRIN
     Indication: Product used for unknown indication
     Dosage: LOW DOSE TABLET DR
     Route: 065

REACTIONS (4)
  - Rash [Unknown]
  - Pain [Unknown]
  - Dry eye [Unknown]
  - Neuropathy peripheral [Unknown]
